FAERS Safety Report 18280874 (Version 1)
Quarter: 2020Q3

REPORT INFORMATION
  Report Type: Report from Study
  Country: US (occurrence: US)
  Receive Date: 20200918
  Receipt Date: 20200918
  Transmission Date: 20201103
  Serious: Yes (Death)
  Sender: FDA-Public Use
  Company Number: US-VIFOR (INTERNATIONAL) INC.-VIT-2020-09413

PATIENT
  Sex: Male

DRUGS (1)
  1. VELPHORO [Suspect]
     Active Substance: SUCROFERRIC OXYHYDROXIDE
     Indication: BLOOD PHOSPHORUS
     Dosage: 180 TABLETS FOR 30 DAYS. 6 TABLETS PER DAY.
     Route: 048
     Dates: start: 201802, end: 20200904

REACTIONS (1)
  - Death [Fatal]

NARRATIVE: CASE EVENT DATE: 20200904
